FAERS Safety Report 24901101 (Version 1)
Quarter: 2025Q1

REPORT INFORMATION
  Report Type: Spontaneous
  Country: US (occurrence: US)
  Receive Date: 20250129
  Receipt Date: 20250129
  Transmission Date: 20250408
  Serious: Yes (Death, Other)
  Sender: PFIZER
  Company Number: US-PFIZER INC-603575

PATIENT
  Age: 6 Year
  Sex: Female

DRUGS (4)
  1. DEXTROSE [Suspect]
     Active Substance: DEXTROSE MONOHYDRATE
     Indication: Fluid replacement
     Route: 042
  2. DEXTROSE [Suspect]
     Active Substance: DEXTROSE MONOHYDRATE
     Route: 042
  3. DIPHENHYDRAMINE [Concomitant]
     Active Substance: DIPHENHYDRAMINE
     Indication: Dystonia
     Route: 042
  4. PROMETHAZINE HYDROCHLORIDE [Concomitant]
     Active Substance: PROMETHAZINE HYDROCHLORIDE
     Indication: Antiemetic supportive care
     Route: 042

REACTIONS (11)
  - Product preparation issue [Fatal]
  - Incorrect drug administration rate [Fatal]
  - Circumstance or information capable of leading to medication error [Fatal]
  - Overdose [Fatal]
  - Water intoxication [Fatal]
  - Hyponatraemia [Fatal]
  - Brain oedema [Fatal]
  - Brain herniation [Fatal]
  - Brain compression [Fatal]
  - Generalised tonic-clonic seizure [Unknown]
  - Vomiting [Unknown]
